FAERS Safety Report 10271242 (Version 1)
Quarter: 2014Q3

REPORT INFORMATION
  Report Type: Spontaneous
  Country: US (occurrence: US)
  Receive Date: 20140701
  Receipt Date: 20140701
  Transmission Date: 20150326
  Serious: No
  Sender: FDA-Public Use
  Company Number: US-GILEAD-2014-0106547

PATIENT
  Age: 54 Year
  Sex: Male

DRUGS (2)
  1. SOVALDI [Suspect]
     Active Substance: SOFOSBUVIR
     Indication: PRODUCT USED FOR UNKNOWN INDICATION
     Dosage: 400 MG, QD
     Route: 065
  2. SIMEPREVIR [Concomitant]
     Active Substance: SIMEPREVIR

REACTIONS (2)
  - Rash pruritic [Not Recovered/Not Resolved]
  - Skin papilloma [Unknown]

NARRATIVE: CASE EVENT DATE: 20140621
